FAERS Safety Report 16671612 (Version 2)
Quarter: 2019Q3

REPORT INFORMATION
  Report Type: Spontaneous
  Country: PL (occurrence: PL)
  Receive Date: 20190806
  Receipt Date: 20190909
  Transmission Date: 20191004
  Serious: Yes (Other)
  Sender: FDA-Public Use
  Company Number: PL-ROCHE-2363434

PATIENT
  Age: 86 Year
  Sex: Male
  Weight: 78 kg

DRUGS (4)
  1. TECENTRIQ [Suspect]
     Active Substance: ATEZOLIZUMAB
     Indication: METASTATIC CARCINOMA OF THE BLADDER
  2. TECENTRIQ [Suspect]
     Active Substance: ATEZOLIZUMAB
     Indication: TRANSITIONAL CELL CARCINOMA
     Route: 042
     Dates: start: 201902
  3. NASEN [Concomitant]
     Route: 048
     Dates: start: 201902
  4. APAP [Concomitant]
     Active Substance: ACETAMINOPHEN
     Route: 048
     Dates: start: 201906

REACTIONS (5)
  - Papule [Unknown]
  - Stomatitis [Recovered/Resolved]
  - Rash follicular [Recovered/Resolved]
  - Wound secretion [Unknown]
  - Erythema [Unknown]

NARRATIVE: CASE EVENT DATE: 20190710
